FAERS Safety Report 7111728-7 (Version None)
Quarter: 2010Q4

REPORT INFORMATION
  Report Type: 
  Country: None (occurrence: None)
  Receive Date: 20101118
  Receipt Date: 20101116
  Transmission Date: 20110411
  Serious: Yes (Other)
  Sender: FDA-Public Use
  Company Number: SE-MERCK-1011SWE00071

PATIENT
  Age: 90 Year
  Sex: Female

DRUGS (2)
  1. COZAAR [Suspect]
     Route: 048
     Dates: start: 20101001
  2. WARFARIN SODIUM [Suspect]
     Route: 048

REACTIONS (3)
  - APHASIA [None]
  - FATIGUE [None]
  - SYNCOPE [None]
